FAERS Safety Report 6016209-X (Version None)
Quarter: 2008Q4

REPORT INFORMATION
  Report Type: 
  Country: None (occurrence: None)
  Receive Date: 20081222
  Receipt Date: 20071107
  Transmission Date: 20090506
  Serious: No
  Sender: FDA-Public Use
  Company Number: US-BRISTOL-MYERS SQUIBB COMPANY-13974241

PATIENT
  Age: 41 Year
  Sex: Female
  Weight: 104 kg

DRUGS (3)
  1. KENALOG [Suspect]
     Indication: MUSCULOSKELETAL PAIN
     Dates: start: 20071019, end: 20071019
  2. DIOVAN [Concomitant]
  3. CLONAZEPAM [Concomitant]

REACTIONS (3)
  - FLUSHING [None]
  - HEART RATE INCREASED [None]
  - MUSCLE SPASMS [None]
